FAERS Safety Report 11747400 (Version 1)
Quarter: 2015Q4

REPORT INFORMATION
  Report Type: Spontaneous
  Country: US (occurrence: US)
  Receive Date: 20151117
  Receipt Date: 20151117
  Transmission Date: 20160304
  Serious: No
  Sender: FDA-Public Use
  Company Number: US-BAYER-2015-464432

PATIENT
  Sex: Female

DRUGS (1)
  1. CLIMARA [Suspect]
     Active Substance: ESTRADIOL
     Dosage: 0.375 MCG/24HR, CONT
     Route: 062
     Dates: start: 201503

REACTIONS (5)
  - Incorrect drug administration rate [None]
  - Menopausal symptoms [None]
  - Product adhesion issue [None]
  - Application site irritation [Unknown]
  - Product quality issue [Unknown]

NARRATIVE: CASE EVENT DATE: 2015
